FAERS Safety Report 14715626 (Version 1)
Quarter: 2018Q2

REPORT INFORMATION
  Report Type: Spontaneous
  Country: GB (occurrence: GB)
  Receive Date: 20180404
  Receipt Date: 20180404
  Transmission Date: 20180711
  Serious: Yes (Other)
  Sender: FDA-Public Use
  Company Number: GB-BAUSCH-BL-2018-007905

PATIENT
  Age: 40 Year
  Sex: Female
  Weight: 79.37 kg

DRUGS (1)
  1. VENLAFAXINE HYDROCHLORIDE. [Suspect]
     Active Substance: VENLAFAXINE HYDROCHLORIDE
     Indication: DEPRESSION
     Route: 048
     Dates: start: 20090905

REACTIONS (7)
  - Paraesthesia oral [Unknown]
  - Paraesthesia [Unknown]
  - Agitation [Unknown]
  - Dizziness [Unknown]
  - Tremor [Unknown]
  - Sensory disturbance [Unknown]
  - Visual impairment [Unknown]
